FAERS Safety Report 8639599 (Version 4)
Quarter: 2012Q4

REPORT INFORMATION
  Report Type: Report from Study
  Country: JP (occurrence: JP)
  Receive Date: 20120627
  Receipt Date: 20121212
  Transmission Date: 20130627
  Serious: Yes (Hospitalization)
  Sender: FDA-Public Use
  Company Number: JP-ROCHE-1067449

PATIENT
  Age: 34 Year
  Sex: Female
  Weight: 48.03 kg

DRUGS (20)
  1. OMALIZUMAB [Suspect]
     Indication: ASTHMA
     Route: 058
     Dates: start: 20100415
  2. OMALIZUMAB [Suspect]
     Route: 058
     Dates: start: 20100728, end: 20100728
  3. TAKEPRON [Concomitant]
     Indication: PRODUCT USED FOR UNKNOWN INDICATION
  4. PURSENNID [Concomitant]
     Route: 065
     Dates: start: 20070711
  5. FLUTICASONE PROPIONATE/SALMETEROL XINAFOATE [Concomitant]
     Route: 065
     Dates: start: 20070807, end: 20100811
  6. ALLEGRA [Concomitant]
     Route: 065
     Dates: start: 20071003
  7. CLARITIN [Concomitant]
     Route: 065
  8. THEOLONG [Concomitant]
     Route: 065
     Dates: start: 20080611
  9. PREDNISOLONE [Concomitant]
     Route: 065
     Dates: start: 20080116
  10. PREDNISOLONE [Concomitant]
     Route: 065
     Dates: start: 20101102
  11. PREDNISOLONE [Concomitant]
     Route: 065
     Dates: start: 20101109
  12. CELESTAMINE [Concomitant]
     Route: 065
     Dates: start: 20091007
  13. MEPTIN [Concomitant]
     Route: 065
     Dates: start: 20080808
  14. SELBEX [Concomitant]
  15. MAGLAX [Concomitant]
  16. METHYCOBAL [Concomitant]
  17. MEXITIL [Concomitant]
  18. LENDORMIN [Concomitant]
  19. LOXONIN [Concomitant]
  20. PRIMPERAN (JAPAN) [Concomitant]

REACTIONS (4)
  - Allergic granulomatous angiitis [Recovering/Resolving]
  - Hypoaesthesia [Recovering/Resolving]
  - Pain [Recovering/Resolving]
  - Condition aggravated [Recovering/Resolving]
